FAERS Safety Report 5106170-4 (Version None)
Quarter: 2006Q3

REPORT INFORMATION
  Report Type: 
  Country: None (occurrence: None)
  Receive Date: 20060912
  Receipt Date: 20060824
  Transmission Date: 20061208
  Serious: Yes (Hospitalization)
  Sender: FDA-Public Use
  Company Number: SE200604002989

PATIENT
  Age: 23 Year
  Sex: Female

DRUGS (2)
  1. ZYPREXA [Suspect]
     Indication: PSYCHOTIC DISORDER
     Dosage: ORAL
     Route: 048
  2. EFFEXOR [Concomitant]

REACTIONS (4)
  - ANTINUCLEAR ANTIBODY POSITIVE [None]
  - CHOLELITHIASIS [None]
  - INTERNATIONAL NORMALISED RATIO INCREASED [None]
  - MUSCLE TWITCHING [None]
